FAERS Safety Report 6569087-4 (Version None)
Quarter: 2010Q1

REPORT INFORMATION
  Report Type: 
  Country: None (occurrence: None)
  Receive Date: 20100203
  Receipt Date: 20100126
  Transmission Date: 20100710
  Serious: Yes (Death, Hospitalization)
  Sender: FDA-Public Use
  Company Number: KR-ELI_LILLY_AND_COMPANY-KR201001001116

PATIENT
  Sex: Male
  Weight: 46.4 kg

DRUGS (9)
  1. PEMETREXED [Suspect]
     Indication: NON-SMALL CELL LUNG CANCER
     Dosage: 735 MG, ON D1 CYCLICAL
     Route: 042
     Dates: start: 20071122, end: 20080103
  2. FOLIC ACID [Concomitant]
     Indication: PROPHYLAXIS
     Dosage: 1 MG, UNK
     Route: 048
     Dates: start: 20071115, end: 20080107
  3. VIT B12 [Concomitant]
     Indication: PROPHYLAXIS
     Dosage: 1 MG, UNK
     Route: 030
     Dates: start: 20071115, end: 20071115
  4. DEXAMETHASONE [Concomitant]
     Indication: PROPHYLAXIS
     Dosage: 20 MG, UNK
     Route: 042
     Dates: start: 20071122, end: 20071229
  5. PHENIRAMINE [Concomitant]
     Indication: ALLERGY PROPHYLAXIS
     Dates: start: 20071122, end: 20071229
  6. NASEA [Concomitant]
     Indication: NAUSEA
     Dates: start: 20071122, end: 20071122
  7. ONDANSETRON [Concomitant]
     Indication: NAUSEA
     Dates: start: 20071228, end: 20080102
  8. UCERAX [Concomitant]
     Indication: PRURITUS
     Dates: start: 20071230, end: 20071231
  9. TALION [Concomitant]
     Indication: PRURITUS
     Dates: start: 20071230, end: 20071231

REACTIONS (7)
  - DYSPNOEA [None]
  - HAEMOGLOBIN DECREASED [None]
  - MALIGNANT NEOPLASM PROGRESSION [None]
  - NON-SMALL CELL LUNG CANCER [None]
  - PNEUMONIA [None]
  - SYNCOPE [None]
  - THROMBOCYTOPENIA [None]
